FAERS Safety Report 9237020 (Version 2)
Quarter: 2013Q2

REPORT INFORMATION
  Report Type: Spontaneous
  Country: US (occurrence: US)
  Receive Date: 20130417
  Receipt Date: 20130425
  Transmission Date: 20140414
  Serious: Yes (Other)
  Sender: FDA-Public Use
  Company Number: PHEH2013US008390

PATIENT
  Sex: Male

DRUGS (16)
  1. MYFORTIC [Suspect]
     Dosage: 180 UKN, BID
     Dates: start: 2008
  2. CLONIDINE [Concomitant]
     Dosage: 3 MG, TID
  3. ISOSORBIDE [Concomitant]
     Dosage: 30 MG, QD
  4. NIFEDIPINE [Concomitant]
     Dosage: 60 MG, QD
  5. PROTONIX [Concomitant]
     Dosage: 40 MG, 4 X DAY
  6. RISPERIDONE [Concomitant]
     Dosage: 2 MG, QD
  7. LORAZEPAM [Concomitant]
     Dosage: 0.5 MG, BID
  8. LORATAB [Concomitant]
     Dosage: 10 MG, BID
  9. LASIX [Concomitant]
     Dosage: 40 MG, PRN
  10. KIONEX [Concomitant]
     Dosage: 60 MG, IF BLOODWORK
  11. CELEXA [Concomitant]
     Dosage: 20 MG, QD
  12. COUMADINE [Concomitant]
     Dosage: 75 MG, QD
  13. DOCUSATE [Concomitant]
     Dosage: 100 MG, BID
  14. PROGRAS [Concomitant]
     Dosage: 1 MG, 4 X DAY
  15. FLOMAX ^BOEHRINGER INGELHEIM^ [Concomitant]
     Dosage: 0.4 MG, QD
  16. NITROTAB [Concomitant]
     Dosage: 0.4 MG, PRN

REACTIONS (1)
  - Dementia Alzheimer^s type [Unknown]
